FAERS Safety Report 7471996-9 (Version None)
Quarter: 2011Q2

REPORT INFORMATION
  Report Type: 
  Country: None (occurrence: None)
  Receive Date: 20110511
  Receipt Date: 20100910
  Transmission Date: 20111010
  Serious: No
  Sender: FDA-Public Use
  Company Number: A0880671A

PATIENT
  Age: 64 Year
  Sex: Male

DRUGS (2)
  1. TYKERB [Suspect]
     Dosage: 1250MG PER DAY
     Route: 048
     Dates: start: 20091202
  2. NO CONCURRENT MEDICATION [Concomitant]

REACTIONS (1)
  - DISEASE PROGRESSION [None]
